FAERS Safety Report 10088852 (Version 1)
Quarter: 2014Q2

REPORT INFORMATION
  Report Type: Spontaneous
  Country: US (occurrence: US)
  Receive Date: 20140421
  Receipt Date: 20140421
  Transmission Date: 20141212
  Serious: Yes (Other)
  Sender: FDA-Public Use
  Company Number: US-JNJFOC-20140407371

PATIENT
  Age: 12 Year
  Sex: Male
  Weight: 75.75 kg

DRUGS (2)
  1. CONCERTA [Suspect]
     Indication: ATTENTION DEFICIT/HYPERACTIVITY DISORDER
     Route: 048
     Dates: start: 201309, end: 20140407
  2. CONCERTA [Suspect]
     Indication: ATTENTION DEFICIT/HYPERACTIVITY DISORDER
     Route: 048
     Dates: start: 20140407

REACTIONS (5)
  - Self-injurious ideation [Unknown]
  - Mood swings [Unknown]
  - Weight increased [Unknown]
  - Drug ineffective [Unknown]
  - Anger [Unknown]
